FAERS Safety Report 5963294-7 (Version None)
Quarter: 2008Q4

REPORT INFORMATION
  Report Type: 
  Country: None (occurrence: None)
  Receive Date: 20081121
  Receipt Date: 20081121
  Transmission Date: 20090506
  Serious: Yes (Life-Threatening, Other)
  Sender: FDA-Public Use
  Company Number: None

PATIENT
  Age: 61 Year
  Sex: Female

DRUGS (1)
  1. PROPAFENONE HCL [Suspect]
     Dosage: 1 TID PO
     Route: 048
     Dates: start: 20081029, end: 20081114

REACTIONS (3)
  - ARRHYTHMIA [None]
  - HEART RATE IRREGULAR [None]
  - PRODUCT QUALITY ISSUE [None]
